FAERS Safety Report 24036234 (Version 1)
Quarter: 2024Q3

REPORT INFORMATION
  Report Type: Spontaneous
  Country: US (occurrence: US)
  Receive Date: 20240701
  Receipt Date: 20240701
  Transmission Date: 20241016
  Serious: No
  Sender: PFIZER
  Company Number: US-PFIZER INC-PV202400085064

PATIENT
  Age: 42 Year
  Sex: Female

DRUGS (1)
  1. NIFEDIPINE [Suspect]
     Active Substance: NIFEDIPINE
     Dosage: UNK

REACTIONS (4)
  - Skin lesion [Unknown]
  - Pain of skin [Unknown]
  - Skin irritation [Unknown]
  - Pruritus [Unknown]
